FAERS Safety Report 10166008 (Version 1)
Quarter: 2014Q2

REPORT INFORMATION
  Report Type: Spontaneous
  Country: US (occurrence: US)
  Receive Date: 20140511
  Receipt Date: 20140511
  Transmission Date: 20141212
  Serious: No
  Sender: FDA-Public Use
  Company Number: US-009507513-2012SP036427

PATIENT
  Age: 12 Year
  Sex: Female
  Weight: 52.16 kg

DRUGS (1)
  1. CLARITIN [Suspect]
     Indication: RHINITIS ALLERGIC
     Dosage: 40 MG, UNKNOWN
     Route: 048
     Dates: start: 20120617

REACTIONS (1)
  - Overdose [Recovered/Resolved]
